FAERS Safety Report 15668583 (Version 4)
Quarter: 2019Q2

REPORT INFORMATION
  Report Type: Spontaneous
  Country: CA (occurrence: CA)
  Receive Date: 20181129
  Receipt Date: 20190402
  Transmission Date: 20190711
  Serious: Yes (Other)
  Sender: FDA-Public Use
  Company Number: CA-PFIZER INC-2018486209

PATIENT
  Age: 65 Year
  Sex: Female
  Weight: 65 kg

DRUGS (3)
  1. METHOTREXATE SODIUM. [Suspect]
     Active Substance: METHOTREXATE SODIUM
     Dosage: 15 MG, WEEKLY
     Dates: start: 20161007
  2. ENBREL [Suspect]
     Active Substance: ETANERCEPT
     Dosage: UNK
     Dates: end: 20181122
  3. METHOTREXATE SODIUM. [Suspect]
     Active Substance: METHOTREXATE SODIUM
     Dosage: VARIABLE DOSES
     Dates: start: 2008

REACTIONS (3)
  - Uveitis [Unknown]
  - Psoriasis [Unknown]
  - Psoriatic arthropathy [Unknown]

NARRATIVE: CASE EVENT DATE: 201809
